FAERS Safety Report 22388638 (Version 1)
Quarter: 2023Q2

REPORT INFORMATION
  Report Type: Spontaneous
  Country: US (occurrence: None)
  Receive Date: 20230529
  Receipt Date: 20230529
  Transmission Date: 20230721
  Serious: Yes (unspecified)
  Sender: FDA-Public Use
  Company Number: None

PATIENT
  Age: 65 Year
  Sex: Female
  Weight: 71.1 kg

DRUGS (21)
  1. VENOFER [Suspect]
     Active Substance: IRON SUCROSE
     Indication: Iron deficiency
     Dosage: OTHER FREQUENCY : M,W,F;?OTHER ROUTE : IV THROUGH PORT;?
     Route: 050
     Dates: start: 20230517, end: 20230517
  2. SYNTHROID [Concomitant]
     Active Substance: LEVOTHYROXINE SODIUM
  3. DIGOXIN [Concomitant]
     Active Substance: DIGOXIN
  4. NEURONTIN [Concomitant]
     Active Substance: GABAPENTIN
  5. VALIUM [Concomitant]
     Active Substance: DIAZEPAM
  6. MORPHINE [Concomitant]
     Active Substance: MORPHINE
  7. BACLOFEN [Concomitant]
     Active Substance: BACLOFEN
  8. PRAZOSIN [Concomitant]
     Active Substance: PRAZOSIN
  9. Hysocyamine [Concomitant]
  10. Bentyl IM [Concomitant]
  11. LIDOCAINE PATCH [Concomitant]
     Active Substance: LIDOCAINE
  12. VITAMIN D [Concomitant]
     Active Substance: VITAMIN D NOS
  13. CYANOCOBALAMIN [Concomitant]
     Active Substance: CYANOCOBALAMIN
  14. BIOTIN [Concomitant]
     Active Substance: BIOTIN
  15. HERBALS\WITHANIA SOMNIFERA ROOT [Concomitant]
     Active Substance: HERBALS\WITHANIA SOMNIFERA ROOT
  16. CALCIUM [Concomitant]
     Active Substance: CALCIUM
  17. MAGNESIUM OXIDE [Concomitant]
     Active Substance: MAGNESIUM OXIDE
  18. MIRALAX [Concomitant]
     Active Substance: POLYETHYLENE GLYCOL 3350
  19. DULCOLAX NOS [Concomitant]
     Active Substance: BISACODYL OR DOCUSATE SODIUM
  20. ALLEGRA-D [Concomitant]
     Active Substance: FEXOFENADINE HYDROCHLORIDE\PSEUDOEPHEDRINE HYDROCHLORIDE
  21. PROBIOTICS NOS [Concomitant]
     Active Substance: PROBIOTICS NOS

REACTIONS (3)
  - Faecaloma [None]
  - Weight decreased [None]
  - Therapy interrupted [None]

NARRATIVE: CASE EVENT DATE: 20230522
